FAERS Safety Report 9522949 (Version 1)
Quarter: 2013Q3

REPORT INFORMATION
  Report Type: Spontaneous
  Country: GB (occurrence: GB)
  Receive Date: 20130913
  Receipt Date: 20130913
  Transmission Date: 20140515
  Serious: Yes (Death, Hospitalization, Other)
  Sender: FDA-Public Use
  Company Number: GB-ASTRAZENECA-2013SE68350

PATIENT
  Age: 54 Year
  Sex: Female
  Weight: 230 kg

DRUGS (17)
  1. MEROPENEM [Suspect]
     Indication: CELLULITIS
     Route: 042
     Dates: start: 20130812, end: 20130820
  2. MEROPENEM [Suspect]
     Indication: CELLULITIS
     Route: 042
  3. CALCIUM RESONIUM [Concomitant]
     Indication: HYPERKALAEMIA
     Route: 048
     Dates: start: 20130812, end: 20130821
  4. CODEINE [Concomitant]
     Indication: PAIN
     Route: 048
     Dates: start: 20130816, end: 20130819
  5. DALACIN C [Concomitant]
     Indication: CELLULITIS
     Route: 042
     Dates: start: 20130803, end: 20130812
  6. FRAGMIN [Concomitant]
     Indication: THROMBOSIS PROPHYLAXIS
     Route: 058
     Dates: start: 20130803, end: 20130820
  7. FUROSEMIDE [Concomitant]
     Route: 048
     Dates: end: 20130808
  8. GENTICIN [Concomitant]
     Indication: CELLULITIS
     Route: 041
     Dates: start: 20130802, end: 20130805
  9. GLICLAZIDE [Concomitant]
     Route: 048
     Dates: end: 20130808
  10. HUMULIN I [Concomitant]
     Route: 058
     Dates: end: 20130819
  11. HUMULIN S [Concomitant]
     Route: 058
     Dates: end: 20130819
  12. LEVOTHYROXINE SODIUM [Concomitant]
     Indication: HYPOTHYROIDISM
     Route: 048
     Dates: end: 20130821
  13. METFORMIN [Concomitant]
     Route: 048
     Dates: end: 20130820
  14. PARACETAMOL [Concomitant]
     Indication: PAIN
     Route: 048
  15. RAMIPRIL [Concomitant]
     Indication: HYPERTENSION
     Route: 048
     Dates: end: 20130819
  16. SIMVASTATIN [Concomitant]
     Route: 048
     Dates: end: 20130820
  17. VANCOMYCIN [Concomitant]
     Indication: CELLULITIS
     Route: 041
     Dates: start: 20130805, end: 20130811

REACTIONS (5)
  - Renal failure acute [Fatal]
  - Blood creatinine increased [Not Recovered/Not Resolved]
  - Drug hypersensitivity [Unknown]
  - Glomerular filtration rate decreased [Not Recovered/Not Resolved]
  - Tubulointerstitial nephritis [Not Recovered/Not Resolved]
